FAERS Safety Report 4374601-3 (Version None)
Quarter: 2004Q2

REPORT INFORMATION
  Report Type: 
  Country: None (occurrence: None)
  Receive Date: 20040609
  Receipt Date: 20040428
  Transmission Date: 20050107
  Serious: Yes (Hospitalization)
  Sender: FDA-Public Use
  Company Number: JP-ROCHE-366703

PATIENT
  Age: 65 Year
  Sex: Male
  Weight: 44.9 kg

DRUGS (7)
  1. ROCEPHIN [Suspect]
     Route: 041
     Dates: start: 20040419, end: 20040421
  2. PL [Suspect]
     Indication: UPPER RESPIRATORY TRACT INFLAMMATION
     Route: 048
     Dates: start: 20040418, end: 20040421
  3. ALLOPURINOL TAB [Concomitant]
     Indication: HYPERURICAEMIA
     Route: 048
     Dates: start: 20040216
  4. NORVASC [Concomitant]
     Indication: HYPERTENSION
     Route: 048
     Dates: start: 20040216
  5. THEOPHYLLINE [Concomitant]
     Indication: ASTHMA
     Route: 048
     Dates: start: 20040216
  6. ALFAROL [Concomitant]
     Indication: OSTEOPOROSIS
     Route: 048
     Dates: start: 20040216
  7. PARIET [Concomitant]
     Indication: DUODENAL ULCER
     Route: 048
     Dates: start: 20040304

REACTIONS (3)
  - HAEMODIALYSIS [None]
  - HYPOAESTHESIA [None]
  - TOXIC EPIDERMAL NECROLYSIS [None]
